FAERS Safety Report 11830136 (Version 2)
Quarter: 2016Q1

REPORT INFORMATION
  Report Type: Report from Study
  Country: US (occurrence: US)
  Receive Date: 20151214
  Receipt Date: 20160127
  Transmission Date: 20160525
  Serious: No
  Sender: FDA-Public Use
  Company Number: US-AMGEN-USASL2015132883

PATIENT
  Age: 55 Year
  Sex: Female

DRUGS (2)
  1. METHOTREXATE [Concomitant]
     Active Substance: METHOTREXATE
     Dosage: UNK
  2. ENBREL [Suspect]
     Active Substance: ETANERCEPT
     Indication: RHEUMATOID ARTHRITIS
     Dosage: 50 MG, ONCE WEEKLY
     Route: 065
     Dates: start: 20151030, end: 201601

REACTIONS (12)
  - Weight increased [Unknown]
  - Joint swelling [Unknown]
  - Insomnia [Unknown]
  - Depression [Unknown]
  - Pain [Unknown]
  - Condition aggravated [Unknown]
  - Stress [Unknown]
  - Candida infection [Unknown]
  - Appetite disorder [Unknown]
  - Immune system disorder [Unknown]
  - Drug ineffective [Unknown]
  - Anger [Unknown]

NARRATIVE: CASE EVENT DATE: 2015
